FAERS Safety Report 10080636 (Version 1)
Quarter: 2014Q2

REPORT INFORMATION
  Report Type: Spontaneous
  Country: JP (occurrence: None)
  Receive Date: 20140414
  Receipt Date: 20140414
  Transmission Date: 20141212
  Serious: Yes (Other)
  Sender: FDA-Public Use
  Company Number: JP-20140068

PATIENT
  Age: 69 Year
  Sex: Male

DRUGS (2)
  1. LIPIODOL ULTRA FLUIDE (ETHIODIZED OIL) [Suspect]
     Indication: THERAPEUTIC EMBOLISATION
     Route: 013
  2. FARMARUBICIN(EPIRUBICIN HYDROCHLORIDE) [Concomitant]

REACTIONS (1)
  - Bile duct obstruction [None]
